FAERS Safety Report 5323414-4 (Version None)
Quarter: 2007Q2

REPORT INFORMATION
  Report Type: 
  Country: None (occurrence: None)
  Receive Date: 20070514
  Receipt Date: 20070508
  Transmission Date: 20071010
  Serious: Yes (Other)
  Sender: FDA-Public Use
  Company Number: US-BAYER-200711441BCC

PATIENT
  Age: 62 Year
  Sex: Female
  Weight: 52 kg

DRUGS (1)
  1. ALKA SELTZER ORIGINAL [Suspect]
     Indication: DEPENDENCE
     Route: 048
     Dates: start: 20070401

REACTIONS (1)
  - DRUG DEPENDENCE [None]
